FAERS Safety Report 21041340 (Version 2)
Quarter: 2022Q3

REPORT INFORMATION
  Report Type: Spontaneous
  Country: DE (occurrence: DE)
  Receive Date: 20220705
  Receipt Date: 20220708
  Transmission Date: 20221027
  Serious: Yes (Death, Other)
  Sender: FDA-Public Use
  Company Number: DE-CELLTRION INC.-2022DE010391

PATIENT

DRUGS (9)
  1. TRASTUZUMAB [Suspect]
     Active Substance: TRASTUZUMAB
     Indication: HER2 positive gastric cancer
     Dosage: 1 MG/KG ? 4/240 MG FOR UP TO 12 MONTHS)
     Dates: start: 201803, end: 202005
  2. TRASTUZUMAB [Suspect]
     Active Substance: TRASTUZUMAB
     Dosage: 6MG/KG (LOADING DOSE 8MG/KG) EVERY 3 WEEKS FOR A TOTAL OF 12 WEEKS FOR IPILIMUMAB ARM
  3. TRASTUZUMAB [Suspect]
     Active Substance: TRASTUZUMAB
     Dosage: FROM WEEK 13, 4 MG/KG,
  4. TRASTUZUMAB [Suspect]
     Active Substance: TRASTUZUMAB
     Dosage: 4 MG/KG INTRAVENOUSLY (LOADING DOSE 6 MG/KG) EVERY 2 WEEKS IN FOLFOX ARM
     Route: 042
  5. NIVOLUMAB [Suspect]
     Active Substance: NIVOLUMAB
     Indication: HER2 positive gastric cancer
     Dosage: 1 MG/KG, EVERY 3 WEEKS FOR A TOTAL OF 12 WEEKS FOR IPILIMUMAB ARM
  6. NIVOLUMAB [Suspect]
     Active Substance: NIVOLUMAB
     Dosage: 240 MG, Q2WEEKS FROM WEEK 13
  7. NIVOLUMAB [Suspect]
     Active Substance: NIVOLUMAB
     Dosage: 240 MG, EVERY 2 WEEKS FOR FOLFOX ARM
  8. FLUOROURACIL\LEUCOVORIN CALCIUM\OXALIPLATIN [Suspect]
     Active Substance: FLUOROURACIL\LEUCOVORIN CALCIUM\OXALIPLATIN
     Indication: HER2 positive gastric cancer
     Dosage: OXALIPLATIN, 85 MG/M2, FLUOROURACIL, 400 MG/M2 BOLUS, FOLINIC ACID, 400  MG/M2, AND FLUOROURACIL, 24
  9. IPILIMUMAB [Suspect]
     Active Substance: IPILIMUMAB
     Indication: HER2 positive gastric cancer
     Dosage: 3MG/KG EVERY 3 WEEKS FOR A TOTAL OF 12 WEEKS

REACTIONS (16)
  - Tumour lysis syndrome [Fatal]
  - Autoimmune disorder [Unknown]
  - Colitis [Unknown]
  - Endocrine disorder [Unknown]
  - Pulmonary embolism [Unknown]
  - Adverse event [Unknown]
  - Anaemia [Unknown]
  - Diarrhoea [Unknown]
  - Fatigue [Unknown]
  - Hepatitis [Unknown]
  - Hypertension [Unknown]
  - Infection [Unknown]
  - Leukopenia [Unknown]
  - Neuropathy peripheral [Unknown]
  - Pneumonitis [Unknown]
  - Pyrexia [Unknown]
